FAERS Safety Report 23076911 (Version 3)
Quarter: 2023Q4

REPORT INFORMATION
  Report Type: Spontaneous
  Country: US (occurrence: US)
  Receive Date: 20231018
  Receipt Date: 20231218
  Transmission Date: 20240110
  Serious: Yes (Other)
  Sender: FDA-Public Use
  Company Number: US-BRISTOL-MYERS SQUIBB COMPANY-2023-147290

PATIENT
  Age: 60 Year
  Sex: Female
  Weight: 68.49 kg

DRUGS (2)
  1. POMALYST [Suspect]
     Active Substance: POMALIDOMIDE
     Indication: Plasma cell myeloma
     Dosage: 21D OF 28D CYCLE
     Route: 048
  2. POMALYST [Suspect]
     Active Substance: POMALIDOMIDE
     Dosage: 3 WEEKS ON 1 WEEK OFF
     Route: 048

REACTIONS (3)
  - Neuropathy peripheral [Unknown]
  - Vulvovaginal pruritus [Unknown]
  - Product supply issue [Unknown]

NARRATIVE: CASE EVENT DATE: 20231214
